FAERS Safety Report 19570340 (Version 1)
Quarter: 2021Q3

REPORT INFORMATION
  Report Type: Spontaneous
  Country: JP (occurrence: JP)
  Receive Date: 20210716
  Receipt Date: 20210716
  Transmission Date: 20211014
  Serious: Yes (Other)
  Sender: FDA-Public Use
  Company Number: JP-PFIZER INC-2021658341

PATIENT
  Age: 89 Year
  Sex: Male
  Weight: 47.5 kg

DRUGS (5)
  1. BAVENCIO [Suspect]
     Active Substance: AVELUMAB
     Dosage: UNK
     Dates: start: 20210503
  2. POLARAMINE [Concomitant]
     Active Substance: DEXCHLORPHENIRAMINE MALEATE
     Dosage: UNK
     Dates: start: 20210503
  3. ACETAMINOPHEN. [Concomitant]
     Active Substance: ACETAMINOPHEN
     Dosage: UNK
     Dates: start: 20210503
  4. INLYTA [Suspect]
     Active Substance: AXITINIB
     Dosage: UNK
  5. INLYTA [Suspect]
     Active Substance: AXITINIB
     Dosage: 6 MG

REACTIONS (5)
  - Infusion related reaction [Recovered/Resolved]
  - Respiratory symptom [Recovered/Resolved]
  - Hypoxia [Recovered/Resolved]
  - Treatment noncompliance [Unknown]
  - Cognitive disorder [Unknown]

NARRATIVE: CASE EVENT DATE: 20210603
